FAERS Safety Report 8463065-6 (Version None)
Quarter: 2012Q2

REPORT INFORMATION
  Report Type: 
  Country: None (occurrence: None)
  Receive Date: 20120625
  Receipt Date: 20120620
  Transmission Date: 20120825
  Serious: No
  Sender: FDA-Public Use
  Company Number: US-PFIZER INC-2012149716

PATIENT
  Sex: Male
  Weight: 74 kg

DRUGS (3)
  1. FLECTOR [Suspect]
     Indication: SPINAL PAIN
     Dosage: UNK, AS NEEDED
     Dates: start: 20110101
  2. VASOTEC [Interacting]
     Indication: BLOOD PRESSURE INCREASED
     Dosage: 20 MG, UNK
  3. NORVASC [Concomitant]
     Indication: BLOOD PRESSURE INCREASED
     Dosage: UNK

REACTIONS (2)
  - INHIBITORY DRUG INTERACTION [None]
  - BLOOD PRESSURE INCREASED [None]
